FAERS Safety Report 10842507 (Version 1)
Quarter: 2015Q1

REPORT INFORMATION
  Report Type: Spontaneous
  Country: US (occurrence: US)
  Receive Date: 20150220
  Receipt Date: 20150220
  Transmission Date: 20150721
  Serious: No
  Sender: FDA-Public Use
  Company Number: US-ABBVIE-14P-163-1277982-00

PATIENT
  Age: 56 Year
  Sex: Female
  Weight: 70.37 kg

DRUGS (4)
  1. BIOTIN [Concomitant]
     Active Substance: BIOTIN
     Indication: VITAMIN SUPPLEMENTATION
  2. HUMIRA [Suspect]
     Active Substance: ADALIMUMAB
     Indication: CROHN^S DISEASE
     Dosage: LOADING DOSE
     Route: 058
  3. HUMIRA [Suspect]
     Active Substance: ADALIMUMAB
     Route: 058
  4. LANSOPRAZOL [Concomitant]
     Active Substance: LANSOPRAZOLE
     Indication: GASTROOESOPHAGEAL REFLUX DISEASE

REACTIONS (1)
  - Alopecia [Not Recovered/Not Resolved]

NARRATIVE: CASE EVENT DATE: 201407
